FAERS Safety Report 25947422 (Version 1)
Quarter: 2025Q4

REPORT INFORMATION
  Report Type: Other
  Country: US (occurrence: US)
  Receive Date: 20251022
  Receipt Date: 20251022
  Transmission Date: 20260117
  Serious: Yes (Hospitalization, Other)
  Sender: DEXCEL LTD.
  Company Number: US-DEXPHARM-2025-4927

PATIENT
  Age: 47 Year
  Sex: Female

DRUGS (1)
  1. TOFACITINIB [Suspect]
     Active Substance: TOFACITINIB
     Indication: Colitis ulcerative

REACTIONS (2)
  - Off label use [Recovered/Resolved]
  - Autoimmune haemolytic anaemia [Recovered/Resolved]
